FAERS Safety Report 4461835-2 (Version None)
Quarter: 2004Q3

REPORT INFORMATION
  Report Type: 
  Country: None (occurrence: None)
  Receive Date: 20040929
  Receipt Date: 20031027
  Transmission Date: 20050211
  Serious: No
  Sender: FDA-Public Use
  Company Number: US-GLAXOSMITHKLINE-A0431974A

PATIENT
  Age: 92 Year
  Sex: Female
  Weight: 54.5 kg

DRUGS (2)
  1. SEREVENT [Suspect]
     Route: 055
  2. COMBIVENT [Suspect]
     Indication: ILL-DEFINED DISORDER
     Route: 065

REACTIONS (6)
  - COUGH [None]
  - DRUG INEFFECTIVE [None]
  - DYSPNOEA [None]
  - PHARMACEUTICAL PRODUCT COMPLAINT [None]
  - PHARYNGOLARYNGEAL PAIN [None]
  - RESPIRATORY DISORDER [None]
